FAERS Safety Report 19276697 (Version 2)
Quarter: 2022Q4

REPORT INFORMATION
  Report Type: Spontaneous
  Country: FR (occurrence: FR)
  Receive Date: 20210519
  Receipt Date: 20221013
  Transmission Date: 20230112
  Serious: Yes (Death, Other)
  Sender: FDA-Public Use
  Company Number: None

PATIENT
  Age: 39 Year
  Sex: Male

DRUGS (15)
  1. MORPHINE SULFATE [Suspect]
     Active Substance: MORPHINE SULFATE
     Indication: Product used for unknown indication
     Dosage: UNK
     Route: 065
  2. NOSCAPINE [Suspect]
     Active Substance: NOSCAPINE
     Indication: Product used for unknown indication
     Dosage: UNK
     Route: 065
  3. NOSCAPINE [Suspect]
     Active Substance: NOSCAPINE
     Indication: Product used for unknown indication
  4. COCAINE [Suspect]
     Active Substance: COCAINE
     Indication: Product used for unknown indication
     Dosage: UNK
     Route: 050
  5. COCAINE [Suspect]
     Active Substance: COCAINE
     Indication: Product used for unknown indication
  6. METHADONE HYDROCHLORIDE [Suspect]
     Active Substance: METHADONE HYDROCHLORIDE
     Indication: Product used for unknown indication
     Dosage: UNK
     Route: 065
  7. METHADONE HYDROCHLORIDE [Suspect]
     Active Substance: METHADONE HYDROCHLORIDE
     Indication: Product used for unknown indication
  8. PAPAVERINE [Suspect]
     Active Substance: PAPAVERINE
     Indication: Product used for unknown indication
     Dosage: UNK
     Route: 065
  9. PAPAVERINE [Suspect]
     Active Substance: PAPAVERINE
     Indication: Product used for unknown indication
  10. VALIUM [Suspect]
     Active Substance: DIAZEPAM
     Indication: Product used for unknown indication
     Dosage: UNK
     Route: 050
  11. VALIUM [Suspect]
     Active Substance: DIAZEPAM
     Indication: Product used for unknown indication
  12. CODEINE [Suspect]
     Active Substance: CODEINE
     Indication: Product used for unknown indication
     Dosage: UNK
     Route: 065
  13. CODEINE [Suspect]
     Active Substance: CODEINE
     Indication: Product used for unknown indication
  14. THEBAINE [Suspect]
     Active Substance: THEBAINE
     Indication: Product used for unknown indication
     Dosage: UNK
     Route: 065
  15. THEBAINE [Suspect]
     Active Substance: THEBAINE
     Indication: Product used for unknown indication

REACTIONS (1)
  - Death [Fatal]
